FAERS Safety Report 6508557-1 (Version None)
Quarter: 2009Q4

REPORT INFORMATION
  Report Type: 
  Country: None (occurrence: None)
  Receive Date: 20091221
  Receipt Date: 20091210
  Transmission Date: 20100525
  Serious: Yes (Other)
  Sender: FDA-Public Use
  Company Number: FI-PFIZER INC-2009308187

PATIENT
  Age: 57 Year

DRUGS (2)
  1. SALAZOPYRIN [Suspect]
     Indication: ANKYLOSING SPONDYLITIS
     Dosage: 1500 MG, 2X/DAY
     Route: 048
     Dates: start: 20080101, end: 20090605
  2. DIOVAN [Concomitant]
     Indication: HYPERTENSION
     Dosage: 160MG DAILY

REACTIONS (2)
  - HYPOXIA [None]
  - LUNG INFILTRATION [None]
